FAERS Safety Report 6705765-1 (Version None)
Quarter: 2010Q2

REPORT INFORMATION
  Report Type: 
  Country: None (occurrence: None)
  Receive Date: 20100503
  Receipt Date: 20100421
  Transmission Date: 20101027
  Serious: Yes (Hospitalization, Other)
  Sender: FDA-Public Use
  Company Number: SE-JNJFOC-20100405609

PATIENT
  Age: 52 Year
  Sex: Female

DRUGS (9)
  1. REMICADE [Suspect]
     Indication: RHEUMATOID ARTHRITIS
     Route: 042
  2. SALAZOPYRIN [Suspect]
     Indication: DRUG USE FOR UNKNOWN INDICATION
  3. ZOLOFT [Concomitant]
  4. LYRICA [Concomitant]
  5. OMEPRAZOLE [Concomitant]
  6. CALCICHEW-D3 [Concomitant]
  7. PRONAXEN [Concomitant]
  8. ZOPIKLON [Concomitant]
  9. SODIUM PICOSULPHATE [Concomitant]

REACTIONS (5)
  - AUTOIMMUNE HEPATITIS [None]
  - CYTOMEGALOVIRUS TEST POSITIVE [None]
  - HEPATIC ENCEPHALOPATHY [None]
  - TRANSAMINASES INCREASED [None]
  - URINARY TRACT INFECTION [None]
